APPROVED DRUG PRODUCT: V-CILLIN
Active Ingredient: PENICILLIN V
Strength: 125MG/0.6ML
Dosage Form/Route: FOR SUSPENSION;ORAL
Application: A060002 | Product #001
Applicant: ELI LILLY AND CO
Approved: Approved Prior to Jan 1, 1982 | RLD: No | RS: No | Type: DISCN